FAERS Safety Report 17150671 (Version 1)
Quarter: 2019Q4

REPORT INFORMATION
  Report Type: Spontaneous
  Country: US (occurrence: US)
  Receive Date: 20191213
  Receipt Date: 20191213
  Transmission Date: 20200122
  Serious: No
  Sender: FDA-Public Use
  Company Number: US-DRREDDYS-USA/USA/19/0117147

PATIENT
  Age: 20 Year
  Sex: Male

DRUGS (10)
  1. DOXYCYCLINE. [Concomitant]
     Active Substance: DOXYCYCLINE
     Dosage: ON TAPERED DOSE
  2. PREDNISONE. [Concomitant]
     Active Substance: PREDNISONE
     Indication: ALOPECIA SCARRING
     Route: 065
  3. PREDNISONE. [Concomitant]
     Active Substance: PREDNISONE
     Route: 065
  4. TRIAMCINOLONE [Concomitant]
     Active Substance: TRIAMCINOLONE
     Indication: ALOPECIA SCARRING
  5. TETRACYCLINE [Concomitant]
     Active Substance: TETRACYCLINE
     Indication: ALOPECIA SCARRING
     Route: 065
  6. CLOBETASOL 0.05% [Concomitant]
     Active Substance: CLOBETASOL
     Indication: ALOPECIA SCARRING
  7. MINOCYCLINE HYDROCHLORIDE. [Concomitant]
     Active Substance: MINOCYCLINE HYDROCHLORIDE
     Indication: ALOPECIA SCARRING
     Route: 065
  8. DOXYCYCLINE. [Concomitant]
     Active Substance: DOXYCYCLINE
     Indication: ALOPECIA SCARRING
     Route: 065
  9. ISOTRETINOIN NOT OTHERWISE SPECIFIED [Suspect]
     Active Substance: ISOTRETINOIN
     Indication: ACNE
     Dosage: AS DOSED
     Route: 065
  10. MINOCYCLINE HYDROCHLORIDE. [Concomitant]
     Active Substance: MINOCYCLINE HYDROCHLORIDE
     Dosage: ON TAPERED DOSE
     Route: 065

REACTIONS (1)
  - Epistaxis [Unknown]
